FAERS Safety Report 9209570 (Version 1)
Quarter: 2013Q2

REPORT INFORMATION
  Report Type: Spontaneous
  Country: US (occurrence: None)
  Receive Date: 20130403
  Receipt Date: 20130403
  Transmission Date: 20140414
  Serious: Yes (Life-Threatening, Hospitalization, Disabling)
  Sender: FDA-Public Use
  Company Number: None

PATIENT
  Age: 51 Year
  Sex: Male
  Weight: 131.54 kg

DRUGS (1)
  1. CETIRIZINE 10MG 4H2 [Suspect]
     Route: 048
     Dates: start: 20121012

REACTIONS (4)
  - Cardiac flutter [None]
  - Asthenia [None]
  - Nausea [None]
  - Cardiac disorder [None]
